FAERS Safety Report 11938607 (Version 2)
Quarter: 2016Q1

REPORT INFORMATION
  Report Type: Spontaneous
  Country: GB (occurrence: GB)
  Receive Date: 20160122
  Receipt Date: 20160125
  Transmission Date: 20160526
  Serious: Yes (Other)
  Sender: FDA-Public Use
  Company Number: GB-009507513-1601GBR007888

PATIENT
  Age: 16 Year
  Sex: Female
  Weight: 53.7 kg

DRUGS (1)
  1. NEXPLANON [Suspect]
     Active Substance: ETONOGESTREL
     Indication: CONTRACEPTION
     Dosage: 68 MG, UNK
     Route: 058
     Dates: start: 20151126, end: 20160108

REACTIONS (6)
  - Implant site fibrosis [Unknown]
  - Reaction to drug excipients [Unknown]
  - Device breakage [Unknown]
  - Implant site swelling [Unknown]
  - Implant site irritation [Unknown]
  - Implant site pruritus [Unknown]

NARRATIVE: CASE EVENT DATE: 20151126
